FAERS Safety Report 13128702 (Version 1)
Quarter: 2017Q1

REPORT INFORMATION
  Report Type: Spontaneous
  Country: US (occurrence: US)
  Receive Date: 20170119
  Receipt Date: 20170119
  Transmission Date: 20170428
  Serious: No
  Sender: FDA-Public Use
  Company Number: US-CELGENEUS-USA-2017012806

PATIENT
  Age: 47 Year
  Sex: Female

DRUGS (1)
  1. OTEZLA [Suspect]
     Active Substance: APREMILAST
     Indication: PSORIATIC ARTHROPATHY
     Dosage: (STARTER PACK) CUTTING PILL IN HALF
     Route: 048
     Dates: start: 20170106

REACTIONS (8)
  - Hyperhidrosis [Unknown]
  - Chills [Unknown]
  - Dizziness [Unknown]
  - Headache [Unknown]
  - Diarrhoea [Unknown]
  - Drug dose omission [Unknown]
  - Influenza like illness [Unknown]
  - Nausea [Unknown]

NARRATIVE: CASE EVENT DATE: 201701
